FAERS Safety Report 18179061 (Version 1)
Quarter: 2020Q3

REPORT INFORMATION
  Report Type: Report from Study
  Country: US (occurrence: US)
  Receive Date: 20200820
  Receipt Date: 20200820
  Transmission Date: 20201103
  Serious: Yes (Hospitalization, Other)
  Sender: FDA-Public Use
  Company Number: US-GILEAD-2020-0491059

PATIENT
  Sex: Female

DRUGS (20)
  1. TOBRAMYCIN. [Concomitant]
     Active Substance: TOBRAMYCIN
  2. BUDESONIDE. [Concomitant]
     Active Substance: BUDESONIDE
  3. ACETYLCYSTEINE. [Concomitant]
     Active Substance: ACETYLCYSTEINE
  4. AZITHROMYCIN ANHYDROUS. [Concomitant]
     Active Substance: AZITHROMYCIN ANHYDROUS
  5. HYPERSAL [Concomitant]
     Active Substance: SODIUM CHLORIDE
  6. CYCLOBENZAPRINE HYDROCHLORIDE. [Concomitant]
     Active Substance: CYCLOBENZAPRINE HYDROCHLORIDE
  7. VITAMIN D [COLECALCIFEROL] [Concomitant]
     Active Substance: CHOLECALCIFEROL
  8. VENTOLIN [Concomitant]
     Active Substance: ALBUTEROL SULFATE
  9. MAGNESIUM PLUS [MAGNESIUM] [Concomitant]
  10. PREDNISONE. [Concomitant]
     Active Substance: PREDNISONE
  11. ALPRAZOLAM. [Concomitant]
     Active Substance: ALPRAZOLAM
  12. LORAZEPAM. [Concomitant]
     Active Substance: LORAZEPAM
  13. MEROPENEM. [Concomitant]
     Active Substance: MEROPENEM
  14. URSODIOL. [Concomitant]
     Active Substance: URSODIOL
  15. CALCIUM [Concomitant]
     Active Substance: CALCIUM
  16. TRIKAFTA [Concomitant]
     Active Substance: ELEXACAFTOR\IVACAFTOR\TEZACAFTOR
  17. AZTREONAM LYSINE [Suspect]
     Active Substance: AZTREONAM LYSINE
     Indication: CYSTIC FIBROSIS
     Dosage: 75 MG, TID 28 DAYS ON 28 DAYS OFF
     Route: 055
  18. IPRATROPIUM [Concomitant]
     Active Substance: IPRATROPIUM
  19. COMBIVENT [Concomitant]
     Active Substance: ALBUTEROL SULFATE\IPRATROPIUM BROMIDE
  20. MULTI?VIT [Concomitant]
     Active Substance: VITAMINS

REACTIONS (1)
  - Cystic fibrosis [Unknown]
